FAERS Safety Report 4571998-6 (Version None)
Quarter: 2005Q1

REPORT INFORMATION
  Report Type: 
  Country: None (occurrence: None)
  Receive Date: 20050203
  Receipt Date: 20050203
  Transmission Date: 20050727
  Serious: Yes (Other)
  Sender: FDA-Public Use
  Company Number: None

PATIENT
  Age: 51 Year
  Sex: Male

DRUGS (1)
  1. DRYSOL 20% SOLN [Suspect]
     Indication: HYPERHIDROSIS
     Dosage: 20% SOLN TOP DAILY
     Route: 061
     Dates: start: 20040712, end: 20040701

REACTIONS (2)
  - OROPHARYNGEAL SWELLING [None]
  - THROAT TIGHTNESS [None]
